FAERS Safety Report 7482184-4 (Version None)
Quarter: 2011Q2

REPORT INFORMATION
  Report Type: 
  Country: None (occurrence: None)
  Receive Date: 20110516
  Receipt Date: 20110510
  Transmission Date: 20111010
  Serious: No
  Sender: FDA-Public Use
  Company Number: US-PFIZER INC-2011100991

PATIENT
  Sex: Female

DRUGS (3)
  1. SYNTHROID [Concomitant]
     Dosage: UNK
  2. VALIUM [Concomitant]
     Dosage: UNK
  3. ADVIL COLD AND SINUS [Suspect]
     Dosage: UNK

REACTIONS (1)
  - BLOOD PRESSURE INCREASED [None]
